FAERS Safety Report 10646832 (Version 2)
Quarter: 2014Q4

REPORT INFORMATION
  Report Type: Spontaneous
  Country: RS (occurrence: RS)
  Receive Date: 20141211
  Receipt Date: 20141211
  Transmission Date: 20150529
  Serious: Yes (Hospitalization)
  Sender: FDA-Public Use
  Company Number: PHHY2014RS094393

PATIENT
  Age: 3 Year
  Sex: Male

DRUGS (1)
  1. CARBAMAZEPINE. [Suspect]
     Active Substance: CARBAMAZEPINE
     Indication: SEIZURE
     Route: 065

REACTIONS (23)
  - Escherichia sepsis [Unknown]
  - Hypoalbuminaemia [Unknown]
  - Stevens-Johnson syndrome [Unknown]
  - Skin erosion [Recovered/Resolved]
  - Toxic epidermal necrolysis [Unknown]
  - Vomiting [Unknown]
  - Dehydration [Unknown]
  - Toxicity to various agents [Recovered/Resolved]
  - Nikolsky^s sign [Recovered/Resolved]
  - Anaemia [Unknown]
  - Myalgia [Recovered/Resolved]
  - Conjunctival disorder [Recovered/Resolved]
  - Anorectal disorder [Recovered/Resolved]
  - Body temperature increased [Recovered/Resolved]
  - Skin lesion [Recovered/Resolved]
  - Confusional state [Recovered/Resolved]
  - Malaise [Recovered/Resolved]
  - Arthralgia [Recovered/Resolved]
  - Diarrhoea [Unknown]
  - Rash macular [Recovered/Resolved]
  - Blister [Recovered/Resolved]
  - Pyrexia [Recovered/Resolved]
  - Oral disorder [Recovered/Resolved]
